FAERS Safety Report 13374470 (Version 1)
Quarter: 2017Q1

REPORT INFORMATION
  Report Type: Spontaneous
  Country: HR (occurrence: HR)
  Receive Date: 20170327
  Receipt Date: 20170327
  Transmission Date: 20170429
  Serious: Yes (Death, Hospitalization, Other)
  Sender: FDA-Public Use
  Company Number: HR-JNJFOC-20170325724

PATIENT

DRUGS (10)
  1. DOXORUBICIN HYDROCHLORIDE. [Suspect]
     Active Substance: DOXORUBICIN HYDROCHLORIDE
     Indication: DIFFUSE LARGE B-CELL LYMPHOMA
     Dosage: ON DAYS??1 TO 4
     Route: 065
  2. FILGRASTIM [Suspect]
     Active Substance: FILGRASTIM
     Indication: DIFFUSE LARGE B-CELL LYMPHOMA
     Dosage: FROM DAY 6
     Route: 058
  3. RITUXIMAB [Suspect]
     Active Substance: RITUXIMAB
     Indication: DIFFUSE LARGE B-CELL LYMPHOMA
     Route: 065
  4. TRIMETHOPRIM SULFAMETHOXAZOLE [Concomitant]
     Active Substance: SULFAMETHOXAZOLE\TRIMETHOPRIM
     Indication: ANTIFUNGAL PROPHYLAXIS
     Dosage: THREE TIMES A WEEK
     Route: 065
  5. ONCOVIN [Suspect]
     Active Substance: VINCRISTINE SULFATE
     Indication: DIFFUSE LARGE B-CELL LYMPHOMA
     Dosage: ON DAYS 1 TO 4
     Route: 065
  6. PREDNISONE. [Suspect]
     Active Substance: PREDNISONE
     Indication: DIFFUSE LARGE B-CELL LYMPHOMA
     Dosage: ON DAYS 1 TO 5
     Route: 048
  7. ETOPOSIDE. [Suspect]
     Active Substance: ETOPOSIDE
     Indication: DIFFUSE LARGE B-CELL LYMPHOMA
     Dosage: DAYS 1 TO 4
     Route: 065
  8. CYCLOPHOSPHAMIDE. [Suspect]
     Active Substance: CYCLOPHOSPHAMIDE
     Indication: DIFFUSE LARGE B-CELL LYMPHOMA
     Dosage: OVER 15 MINUTES ON DAY 5,
     Route: 042
  9. FLUCONAZOLE. [Concomitant]
     Active Substance: FLUCONAZOLE
     Indication: ANTIFUNGAL PROPHYLAXIS
     Dosage: THREE TIMES A WEEK
     Route: 065
  10. ACYCLOVIR. [Concomitant]
     Active Substance: ACYCLOVIR
     Indication: PROPHYLAXIS
     Dosage: THREE TIMES A WEEK
     Route: 065

REACTIONS (15)
  - Thrombocytopenia [Unknown]
  - Hepatitis B [Fatal]
  - Off label use [Unknown]
  - Cerebral infarction [Unknown]
  - Cystitis haemorrhagic [Unknown]
  - Anaemia [Unknown]
  - Venous thrombosis [Unknown]
  - Treatment noncompliance [Unknown]
  - Gastrointestinal haemorrhage [Fatal]
  - Polyneuropathy [Unknown]
  - Febrile neutropenia [Unknown]
  - Product use issue [Unknown]
  - Neutropenia [Unknown]
  - Sepsis [Fatal]
  - Infection [Fatal]
